FAERS Safety Report 7328757-0 (Version None)
Quarter: 2011Q1

REPORT INFORMATION
  Report Type: 
  Country: None (occurrence: None)
  Receive Date: 20110303
  Receipt Date: 20110218
  Transmission Date: 20110831
  Serious: Yes (Other)
  Sender: FDA-Public Use
  Company Number: PHHY2010CA00660

PATIENT
  Sex: Female

DRUGS (4)
  1. SANDOSTATIN LAR [Suspect]
     Dosage: 60 MG, UNK
     Route: 030
     Dates: start: 20100726
  2. SANDOSTATIN LAR [Suspect]
     Indication: NEUROENDOCRINE TUMOUR
     Dosage: 40 MG ONCE A MONTH
     Route: 030
     Dates: start: 20091203
  3. SANDOSTATIN LAR [Suspect]
     Dosage: 40 MG, QMO
     Route: 030
  4. SANDOSTATIN LAR [Suspect]
     Dosage: 20 MG, EVERY 4 WEEKS
     Route: 030

REACTIONS (24)
  - CHEST DISCOMFORT [None]
  - PRURITUS [None]
  - PAIN [None]
  - MUSCULOSKELETAL DISCOMFORT [None]
  - INCORRECT DOSE ADMINISTERED [None]
  - BACK PAIN [None]
  - FATIGUE [None]
  - LUNG INFECTION [None]
  - DYSPNOEA [None]
  - PRURITUS GENERALISED [None]
  - ABDOMINAL PAIN [None]
  - DIZZINESS [None]
  - DIARRHOEA [None]
  - MUSCLE SPASMS [None]
  - ABDOMINAL DISTENSION [None]
  - GASTROINTESTINAL DISORDER [None]
  - ASCITES [None]
  - LOCALISED INTRAABDOMINAL FLUID COLLECTION [None]
  - OEDEMA PERIPHERAL [None]
  - ABDOMINAL DISCOMFORT [None]
  - ASTHENIA [None]
  - INJECTION SITE HAEMORRHAGE [None]
  - NEURALGIA [None]
  - ACCIDENTAL OVERDOSE [None]
